FAERS Safety Report 10309501 (Version 3)
Quarter: 2014Q4

REPORT INFORMATION
  Report Type: Spontaneous
  Country: US (occurrence: US)
  Receive Date: 20140717
  Receipt Date: 20141001
  Transmission Date: 20150528
  Serious: No
  Sender: FDA-Public Use
  Company Number: US-AMGEN INC.-USASP2014052918

PATIENT
  Age: 55 Year
  Sex: Female

DRUGS (1)
  1. ENBREL [Suspect]
     Active Substance: ETANERCEPT
     Indication: RHEUMATOID ARTHRITIS
     Dosage: 50 MG, QWK
     Route: 065
     Dates: start: 20140709

REACTIONS (11)
  - Injection site erythema [Recovered/Resolved]
  - Body temperature increased [Not Recovered/Not Resolved]
  - Musculoskeletal stiffness [Not Recovered/Not Resolved]
  - Injection site swelling [Not Recovered/Not Resolved]
  - Erythema [Recovered/Resolved]
  - Dysgeusia [Recovered/Resolved]
  - Skin discolouration [Recovered/Resolved]
  - Injection site discolouration [Not Recovered/Not Resolved]
  - Malaise [Not Recovered/Not Resolved]
  - Skin swelling [Recovered/Resolved]
  - Injection site warmth [Not Recovered/Not Resolved]

NARRATIVE: CASE EVENT DATE: 201407
